FAERS Safety Report 12434448 (Version 1)
Quarter: 2016Q2

REPORT INFORMATION
  Report Type: Report from Study
  Country: US (occurrence: US)
  Receive Date: 20160603
  Receipt Date: 20160603
  Transmission Date: 20160815
  Serious: No
  Sender: FDA-Public Use
  Company Number: US-MDT-ADR-2016-00086

PATIENT
  Age: 69 Year
  Sex: Male

DRUGS (4)
  1. BUPIVACAINE. [Suspect]
     Active Substance: BUPIVACAINE
     Dosage: 4.9944 MG/DAY
     Route: 037
     Dates: start: 20151210
  2. HYDROMORPHONE [Suspect]
     Active Substance: HYDROMORPHONE
     Dosage: 0.9989 MG/DAY
     Route: 037
     Dates: start: 20151210
  3. CLONIDINE. [Suspect]
     Active Substance: CLONIDINE
     Dosage: 124.86 MCG/DAY
     Route: 037
     Dates: start: 20151210
  4. COMPOUNDED BACLOFEN [Suspect]
     Active Substance: BACLOFEN
     Dosage: 249.72 MCG/DAY
     Route: 037
     Dates: start: 20151210

REACTIONS (1)
  - Pain [Recovered/Resolved]

NARRATIVE: CASE EVENT DATE: 20151210
